FAERS Safety Report 5127637-9 (Version None)
Quarter: 2006Q4

REPORT INFORMATION
  Report Type: 
  Country: None (occurrence: None)
  Receive Date: 20061016
  Receipt Date: 20061009
  Transmission Date: 20070319
  Serious: Yes (Other)
  Sender: FDA-Public Use
  Company Number: JP-ALLERGAN-0606103US

PATIENT
  Sex: Female
  Weight: 11 kg

DRUGS (5)
  1. ALESION SYRUP [Suspect]
     Indication: DERMATITIS ATOPIC
     Route: 048
     Dates: start: 20060419, end: 20060501
  2. ALESION SYRUP [Suspect]
     Route: 048
     Dates: start: 20060720, end: 20060728
  3. PHENOBAL                           /00023201/ [Concomitant]
     Indication: EPILEPSY
     Dosage: 50 MG, UNK
     Route: 048
     Dates: start: 20060127
  4. DEPAKENE                           /00228502/ [Concomitant]
     Indication: EPILEPSY
     Route: 048
     Dates: start: 20041110, end: 20060511
  5. INTAL [Concomitant]
     Indication: FOOD ALLERGY
     Route: 048
     Dates: start: 20051011

REACTIONS (6)
  - ALANINE AMINOTRANSFERASE INCREASED [None]
  - ASPARTATE AMINOTRANSFERASE INCREASED [None]
  - BLOOD LACTATE DEHYDROGENASE INCREASED [None]
  - GAMMA-GLUTAMYLTRANSFERASE INCREASED [None]
  - LIVER DISORDER [None]
  - PARTIAL SEIZURES [None]
